FAERS Safety Report 23644828 (Version 1)
Quarter: 2024Q1

REPORT INFORMATION
  Report Type: Spontaneous
  Country: US (occurrence: None)
  Receive Date: 20240317
  Receipt Date: 20240317
  Transmission Date: 20240410
  Serious: Yes (unspecified)
  Sender: FDA-Public Use
  Company Number: None

PATIENT
  Age: 70 Year
  Sex: Female
  Weight: 62.1 kg

DRUGS (5)
  1. CEFDINIR [Suspect]
     Active Substance: CEFDINIR
     Indication: Nephrolithiasis
     Dosage: OTHER QUANTITY : 20 CAPSULE(S);?FREQUENCY : EVERY 12 HOURS;?
     Route: 048
     Dates: start: 20240227, end: 20240304
  2. CEFDINIR [Suspect]
     Active Substance: CEFDINIR
     Indication: Kidney infection
  3. ATORVASTATIN CALCIUM [Concomitant]
     Active Substance: ATORVASTATIN CALCIUM
  4. METFORMIN [Concomitant]
     Active Substance: METFORMIN HYDROCHLORIDE
  5. CLONAZEPAM [Concomitant]
     Active Substance: CLONAZEPAM

REACTIONS (1)
  - Urticaria [None]

NARRATIVE: CASE EVENT DATE: 20240304
